FAERS Safety Report 24696885 (Version 1)
Quarter: 2024Q4

REPORT INFORMATION
  Report Type: Spontaneous
  Country: US (occurrence: US)
  Receive Date: 20241204
  Receipt Date: 20241204
  Transmission Date: 20250114
  Serious: No
  Sender: GUERBET
  Company Number: US-GUERBET / LLC-US-20240144

PATIENT
  Sex: Female

DRUGS (1)
  1. DOTAREM [Suspect]
     Active Substance: GADOTERATE MEGLUMINE
     Indication: Arthrogram

REACTIONS (2)
  - Rash [Unknown]
  - Product use in unapproved indication [Unknown]
